FAERS Safety Report 9478328 (Version 2)
Quarter: 2013Q3

REPORT INFORMATION
  Report Type: Other
  Country: GB (occurrence: GB)
  Receive Date: 20130827
  Receipt Date: 20130829
  Transmission Date: 20140515
  Serious: Yes (Death)
  Sender: FDA-Public Use
  Company Number: GB-US-EMD SERONO, INC.-7232858

PATIENT
  Sex: Female

DRUGS (4)
  1. MITOXANTRONE [Suspect]
     Indication: MULTIPLE SCLEROSIS
  2. COPAXONE /01410902/ [Suspect]
     Indication: MULTIPLE SCLEROSIS
  3. DAUNORUBICIN [Suspect]
     Indication: ACUTE MYELOID LEUKAEMIA
  4. CYTARABINE [Suspect]
     Indication: ACUTE MYELOID LEUKAEMIA

REACTIONS (2)
  - Neutropenic sepsis [Fatal]
  - Acute myeloid leukaemia [Fatal]
